FAERS Safety Report 8248142-7 (Version None)
Quarter: 2012Q1

REPORT INFORMATION
  Report Type: 
  Country: None (occurrence: None)
  Receive Date: 20120330
  Receipt Date: 20120321
  Transmission Date: 20120608
  Serious: Yes (Hospitalization)
  Sender: FDA-Public Use
  Company Number: US-ASTRAZENECA-2012SE20020

PATIENT
  Age: 22980 Day
  Sex: Female

DRUGS (16)
  1. METOPROLOL SUCCINATE EXTENDED RELEASE [Concomitant]
     Indication: HYPERTENSION
     Route: 048
  2. LISINOPRIL AND HYDROCHLOROTHIAZIDE [Concomitant]
     Indication: HYPERTENSION
     Route: 048
  3. SALSALATE [Concomitant]
     Indication: PAIN
     Route: 048
  4. ATROVENT [Concomitant]
     Indication: CHRONIC OBSTRUCTIVE PULMONARY DISEASE
     Dosage: AROUND EVERY TWO MONTHS
     Route: 055
  5. PREGABALIN [Suspect]
     Indication: PAIN
     Route: 048
  6. HYDROCODONE BITARTRATE AND ACETAMINOPHEN [Concomitant]
     Indication: PAIN
     Dosage: 10/325
     Route: 048
  7. PLAVIX [Suspect]
     Route: 048
     Dates: start: 20120222
  8. ALLOPURINOL [Concomitant]
     Indication: GOUT
     Route: 048
  9. ATROVENT [Concomitant]
     Indication: ASTHMA
     Dosage: AROUND EVERY TWO MONTHS
     Route: 055
  10. PLAVIX [Suspect]
     Indication: CORONARY ARTERY DISEASE
     Route: 048
     Dates: start: 20111216, end: 20120216
  11. ARTIFICIAL TEARS [Concomitant]
     Indication: DRY EYE
     Route: 047
  12. ASPIRIN [Concomitant]
     Route: 048
     Dates: start: 20110310
  13. CRESTOR [Concomitant]
     Indication: HYPERLIPIDAEMIA
     Route: 048
  14. BACLOFEN [Suspect]
     Indication: PAIN
     Route: 048
  15. TRAZODONE HCL [Concomitant]
     Indication: INSOMNIA
     Route: 048
  16. ZYRTEC [Concomitant]
     Indication: RHINITIS ALLERGIC
     Route: 048

REACTIONS (2)
  - SYNCOPE [None]
  - ADVERSE DRUG REACTION [None]
